FAERS Safety Report 24118294 (Version 1)
Quarter: 2024Q3

REPORT INFORMATION
  Report Type: Spontaneous
  Country: US (occurrence: US)
  Receive Date: 20240722
  Receipt Date: 20240722
  Transmission Date: 20241016
  Serious: No
  Sender: MERCK
  Company Number: US-009507513-2406USA009557

PATIENT
  Age: 8 Month

DRUGS (4)
  1. BRIDION [Suspect]
     Active Substance: SUGAMMADEX
     Indication: Neuromuscular blockade reversal
     Dosage: 1.85 MILLIGRAM/KILOGRAM, ONCE
  2. BRIDION [Suspect]
     Active Substance: SUGAMMADEX
     Dosage: 2.38 MILLIGRAM/KILOGRAM, ONCE
  3. ROCURONIUM [Concomitant]
     Active Substance: ROCURONIUM BROMIDE
     Dosage: TOTAL INTRAOPERATIVE: 0.34 MG/KG/HR
  4. ROCURONIUM [Concomitant]
     Active Substance: ROCURONIUM BROMIDE
     Dosage: TOTAL INTRAOPERATIVE: 0.18 MG/KG/HR

REACTIONS (1)
  - Off label use [Unknown]
